FAERS Safety Report 15569969 (Version 2)
Quarter: 2018Q4

REPORT INFORMATION
  Report Type: Spontaneous
  Country: DE (occurrence: DE)
  Receive Date: 20181031
  Receipt Date: 20181031
  Transmission Date: 20190205
  Serious: Yes (Other)
  Sender: FDA-Public Use
  Company Number: PHHY2018DE142622

PATIENT
  Age: 83 Year
  Sex: Female

DRUGS (10)
  1. PREDNISOLONE. [Suspect]
     Active Substance: PREDNISOLONE
     Indication: PEMPHIGOID
     Dosage: 0.25 MG/KG, UNK
     Route: 048
  2. HEPARIN SODIUM. [Concomitant]
     Active Substance: HEPARIN SODIUM
     Indication: IMMUNOADSORPTION THERAPY
     Dosage: 5000 IU, UNK
     Route: 065
  3. CALCIUM [Concomitant]
     Active Substance: CALCIUM
     Indication: OSTEOPOROSIS PROPHYLAXIS
     Dosage: 1000 MG, UNK
     Route: 065
  4. ANTICOAGULANT CITRATE DEXTROSE SOLUTION (ACD) NOS [Concomitant]
     Active Substance: CITRIC ACID MONOHYDRATE\DEXTROSE\SODIUM CITRATE
     Indication: IMMUNOADSORPTION THERAPY
     Route: 065
  5. DAPSONE. [Suspect]
     Active Substance: DAPSONE
     Indication: PEMPHIGOID
     Dosage: 100 MG, UNK
     Route: 065
  6. PREDNISOLONE. [Suspect]
     Active Substance: PREDNISOLONE
     Dosage: 20 MG, QD
     Route: 048
  7. CLOBETASOL PROPRIONATE [Suspect]
     Active Substance: CLOBETASOL PROPIONATE
     Indication: PEMPHIGOID
     Dosage: UNK UNK, BID
     Route: 061
  8. VITAMIIN E [Concomitant]
     Indication: DRUG TOLERANCE
     Dosage: 300 MG, UNK
     Route: 065
  9. DAPSONE. [Suspect]
     Active Substance: DAPSONE
     Dosage: 75 MG, QD
     Route: 065
  10. VITAMIN D3 [Concomitant]
     Active Substance: CHOLECALCIFEROL
     Indication: OSTEOPOROSIS PROPHYLAXIS
     Dosage: 1000 MG, UNK
     Route: 065

REACTIONS (2)
  - Pemphigoid [Unknown]
  - Disease recurrence [Unknown]
